FAERS Safety Report 7392643-0 (Version None)
Quarter: 2011Q2

REPORT INFORMATION
  Report Type: 
  Country: None (occurrence: None)
  Receive Date: 20110404
  Receipt Date: 20110328
  Transmission Date: 20111010
  Serious: Yes (Other)
  Sender: FDA-Public Use
  Company Number: US-TEVA-270144USA

PATIENT
  Sex: Female

DRUGS (3)
  1. PREDNISONE [Concomitant]
  2. CLARAVIS [Suspect]
     Indication: ACNE CYSTIC
     Route: 048
     Dates: start: 20110201, end: 20110213
  3. MUPIROCIN [Concomitant]

REACTIONS (3)
  - SUICIDAL IDEATION [None]
  - TREATMENT NONCOMPLIANCE [None]
  - HEADACHE [None]
